FAERS Safety Report 4302626-2 (Version None)
Quarter: 2004Q1

REPORT INFORMATION
  Report Type: 
  Country: None (occurrence: None)
  Receive Date: 20040217
  Receipt Date: 20030818
  Transmission Date: 20041129
  Serious: Yes (Other)
  Sender: FDA-Public Use
  Company Number: 2003173217US

PATIENT
  Sex: Male

DRUGS (2)
  1. EMCYT [Suspect]
     Indication: PROSTATE CANCER
     Dosage: 280 MG, BID 3 TIMES/WK CYCLIC, ORAL
     Route: 048
     Dates: start: 20010529
  2. TAXOTERE [Concomitant]

REACTIONS (3)
  - DISEASE PROGRESSION [None]
  - DRUG INEFFECTIVE [None]
  - PROSTATE CANCER [None]
